FAERS Safety Report 5363969-7 (Version None)
Quarter: 2007Q2

REPORT INFORMATION
  Report Type: 
  Country: None (occurrence: None)
  Receive Date: 20070620
  Receipt Date: 20070515
  Transmission Date: 20071010
  Serious: Yes (Other)
  Sender: FDA-Public Use
  Company Number: US-PFIZER INC-2006029610

PATIENT
  Sex: Female

DRUGS (1)
  1. BEXTRA [Suspect]
     Indication: CARPAL TUNNEL SYNDROME
     Dosage: TEXT:10-20MG-FREQ:PRN

REACTIONS (1)
  - STEVENS-JOHNSON SYNDROME [None]
